FAERS Safety Report 14450086 (Version 1)
Quarter: 2018Q1

REPORT INFORMATION
  Report Type: Report from Study
  Country: JP (occurrence: JP)
  Receive Date: 20180129
  Receipt Date: 20180129
  Transmission Date: 20180509
  Serious: Yes (Other)
  Sender: FDA-Public Use
  Company Number: JP-ROCHE-1807738

PATIENT
  Age: 7 Year
  Sex: Female
  Weight: 29 kg

DRUGS (23)
  1. CICLOSPORIN [Suspect]
     Active Substance: CYCLOSPORINE
     Indication: NEPHROTIC SYNDROME
     Route: 048
  2. RITUXIMAB. [Suspect]
     Active Substance: RITUXIMAB
     Route: 042
     Dates: start: 20170509, end: 20170509
  3. SOLU-CORTEF [Concomitant]
     Active Substance: HYDROCORTISONE SODIUM SUCCINATE
     Dosage: SAME DOSE SUBSEQUENTLY ON 05-JAN-2017 AND 09-MAY-2017
     Route: 042
     Dates: start: 20160901, end: 20160901
  4. POLARAMINE [Concomitant]
     Active Substance: DEXCHLORPHENIRAMINE MALEATE
     Route: 042
     Dates: start: 20151215, end: 20151215
  5. POLARAMINE [Concomitant]
     Active Substance: DEXCHLORPHENIRAMINE MALEATE
     Dosage: SAME DOSE SUBSEQUENTLY ON 05-JAN-2017 AND 09-MAY-2017
     Route: 042
     Dates: start: 20160901, end: 20160901
  6. DAIPHEN [Concomitant]
     Active Substance: SULFAMETHOXAZOLE\TRIMETHOPRIM
     Indication: INFECTION PROPHYLAXIS
     Route: 048
  7. FAMOTIDINE. [Concomitant]
     Active Substance: FAMOTIDINE
     Indication: PROPHYLAXIS
     Route: 048
  8. AMLODIPINE [Concomitant]
     Active Substance: AMLODIPINE BESYLATE
     Route: 048
     Dates: start: 20160909
  9. RITUXIMAB. [Suspect]
     Active Substance: RITUXIMAB
     Dosage: INITIAL INFUSION RATE 10 MG/H AND MAXIMUM 40 MG/H
     Route: 041
     Dates: start: 20160901, end: 20160901
  10. MIZORIBINE [Suspect]
     Active Substance: MIZORIBINE
     Indication: NEPHROTIC SYNDROME
     Route: 048
  11. CALONAL [Concomitant]
     Active Substance: ACETAMINOPHEN
     Indication: PREMEDICATION
     Route: 048
     Dates: start: 20151215, end: 20151215
  12. RITUXIMAB. [Suspect]
     Active Substance: RITUXIMAB
     Route: 041
     Dates: start: 20140326
  13. SOLU-CORTEF [Concomitant]
     Active Substance: HYDROCORTISONE SODIUM SUCCINATE
     Route: 042
     Dates: start: 20151215, end: 20151215
  14. ALFACALCIDOL [Concomitant]
     Active Substance: ALFACALCIDOL
     Indication: PROPHYLAXIS
     Route: 048
  15. AMLODIPINE [Concomitant]
     Active Substance: AMLODIPINE BESYLATE
     Indication: PROPHYLAXIS
     Route: 048
     Dates: start: 20160819, end: 20160908
  16. RITUXIMAB. [Suspect]
     Active Substance: RITUXIMAB
     Indication: NEPHROTIC SYNDROME
     Route: 041
     Dates: start: 20151215, end: 20151215
  17. RITUXIMAB. [Suspect]
     Active Substance: RITUXIMAB
     Dosage: THIRD DOSE
     Route: 041
     Dates: start: 20170105, end: 20170105
  18. PREDNISOLONE. [Suspect]
     Active Substance: PREDNISOLONE
     Dosage: 0-55 MG
     Route: 048
     Dates: end: 20170328
  19. PREDNISOLONE. [Suspect]
     Active Substance: PREDNISOLONE
     Dosage: 30-60 MG
     Route: 048
     Dates: start: 20170812
  20. CALONAL [Concomitant]
     Active Substance: ACETAMINOPHEN
     Dosage: SAME DOSE SUBSEQUENTLY ON 05-JAN-2017 AND 09-MAY-2017
     Route: 048
     Dates: start: 20160901, end: 20160901
  21. PREDNISOLONE. [Suspect]
     Active Substance: PREDNISOLONE
     Indication: NEPHROTIC SYNDROME
     Dosage: 15-45 MG
     Route: 048
  22. PREDNISOLONE. [Suspect]
     Active Substance: PREDNISOLONE
     Dosage: 5-45 MG
     Route: 048
  23. PREDNISOLONE. [Suspect]
     Active Substance: PREDNISOLONE
     Dosage: 5-55 MG
     Route: 048

REACTIONS (6)
  - Nephrotic syndrome [Recovered/Resolved]
  - Infection [Recovered/Resolved]
  - Pharyngitis [Recovered/Resolved]
  - Therapeutic response decreased [Unknown]
  - Infusion related reaction [Recovered/Resolved]
  - Pharyngitis [Recovered/Resolved]

NARRATIVE: CASE EVENT DATE: 20151218
